FAERS Safety Report 23849991 (Version 1)
Quarter: 2024Q2

REPORT INFORMATION
  Report Type: Spontaneous
  Country: US (occurrence: None)
  Receive Date: 20240513
  Receipt Date: 20240513
  Transmission Date: 20240716
  Serious: Yes (Hospitalization)
  Sender: FDA-Public Use
  Company Number: None

PATIENT
  Age: 75 Year
  Sex: Male
  Weight: 51.2 kg

DRUGS (1)
  1. PACLITAXEL [Suspect]
     Active Substance: PACLITAXEL
     Indication: Squamous cell carcinoma
     Dosage: 84 MG ONCE IV?
     Route: 042
     Dates: start: 20240411, end: 20240411

REACTIONS (6)
  - Chest discomfort [None]
  - Cough [None]
  - Hypoxia [None]
  - Infusion related reaction [None]
  - Unresponsive to stimuli [None]
  - Wheezing [None]

NARRATIVE: CASE EVENT DATE: 20240411
